APPROVED DRUG PRODUCT: AMRINONE LACTATE
Active Ingredient: INAMRINONE LACTATE
Strength: EQ 5MG BASE/ML
Dosage Form/Route: INJECTABLE;INJECTION
Application: A075513 | Product #001
Applicant: HIKMA PHARMACEUTICALS USA INC
Approved: May 9, 2000 | RLD: No | RS: Yes | Type: RX